FAERS Safety Report 4680058-5 (Version None)
Quarter: 2005Q2

REPORT INFORMATION
  Report Type: 
  Country: None (occurrence: None)
  Receive Date: 20050531
  Receipt Date: 20050516
  Transmission Date: 20051028
  Serious: Yes (Life-Threatening, Hospitalization)
  Sender: FDA-Public Use
  Company Number: 2005075038

PATIENT
  Age: 78 Year
  Sex: Male

DRUGS (4)
  1. IRINOTECAN HCL [Suspect]
     Indication: COLON CANCER
     Dosage: INTRAVENOUS
     Route: 042
     Dates: start: 20040302, end: 20040302
  2. ZOFRAN [Suspect]
     Indication: PREMEDICATION
     Dosage: 24 GRAM (24 GRAM,), ORAL
     Route: 048
     Dates: start: 20040302, end: 20040302
  3. ATROPINE ^BRAUN^ (ATROPINE SULFATE) [Concomitant]
  4. DEXAMETHASONE [Concomitant]

REACTIONS (1)
  - ATRIOVENTRICULAR BLOCK [None]
